FAERS Safety Report 7417944-9 (Version None)
Quarter: 2011Q2

REPORT INFORMATION
  Report Type: 
  Country: None (occurrence: None)
  Receive Date: 20110415
  Receipt Date: 20110411
  Transmission Date: 20111010
  Serious: Yes (Death, Hospitalization, Other)
  Sender: FDA-Public Use
  Company Number: IT-ROCHE-591259

PATIENT

DRUGS (5)
  1. LEUCOVORIN [Suspect]
     Dosage: INFUSION
     Route: 041
  2. BEVACIZUMAB [Suspect]
     Dosage: INFUSION
     Route: 042
  3. FLUOROURACIL [Suspect]
     Dosage: INFUSION
     Route: 041
  4. IRINOTECAN [Suspect]
     Dosage: INFUSION
     Route: 042
  5. OXALIPLATIN [Suspect]
     Dosage: INFUSION
     Route: 042

REACTIONS (17)
  - DEEP VEIN THROMBOSIS [None]
  - FEBRILE NEUTROPENIA [None]
  - STOMATITIS [None]
  - MYOCARDIAL ISCHAEMIA [None]
  - NAUSEA [None]
  - THROMBOCYTOPENIA [None]
  - DEATH [None]
  - DIARRHOEA [None]
  - HYPERTENSION [None]
  - ANAEMIA [None]
  - ASTHENIA [None]
  - LUNG INFECTION [None]
  - NEUTROPENIA [None]
  - GASTROINTESTINAL HAEMORRHAGE [None]
  - ARTERIAL THROMBOSIS [None]
  - NEUROTOXICITY [None]
  - ACUTE MYOCARDIAL INFARCTION [None]
